FAERS Safety Report 9101857 (Version 1)
Quarter: 2013Q1

REPORT INFORMATION
  Report Type: Spontaneous
  Country: FR (occurrence: FR)
  Receive Date: 20130217
  Receipt Date: 20130217
  Transmission Date: 20140127
  Serious: Yes (Hospitalization, Other)
  Sender: FDA-Public Use
  Company Number: FR-BRISTOL-MYERS SQUIBB COMPANY-17362278

PATIENT
  Age: 62 Year
  Sex: Female

DRUGS (6)
  1. ABILIFY [Suspect]
     Indication: DEPRESSION
     Route: 048
     Dates: end: 20121222
  2. FUROSEMIDE [Suspect]
     Indication: OEDEMA PERIPHERAL
     Route: 048
     Dates: start: 20121217, end: 20121220
  3. SIMVASTATIN [Suspect]
     Route: 048
     Dates: start: 2012, end: 20121225
  4. MICARDIS PLUS [Suspect]
     Dosage: 1DF: 80MG/12.5MG
     Route: 048
     Dates: start: 201201, end: 20121220
  5. LEVOTHYROX [Concomitant]
     Route: 048
  6. CYMBALTA [Concomitant]
     Route: 048

REACTIONS (5)
  - Hyponatraemia [Recovered/Resolved]
  - Hypokalaemia [Recovered/Resolved]
  - Hypocalcaemia [Recovered/Resolved]
  - Hepatocellular injury [Recovered/Resolved]
  - Proteinuria [Recovered/Resolved]
